FAERS Safety Report 17570437 (Version 2)
Quarter: 2020Q1

REPORT INFORMATION
  Report Type: Report from Study
  Country: None (occurrence: CA)
  Receive Date: 20200323
  Receipt Date: 20200328
  Transmission Date: 20200409
  Serious: Yes (Hospitalization)
  Sender: FDA-Public Use
  Company Number: CA-ABBVIE-20K-028-3306103-00

PATIENT
  Age: 32 Year
  Sex: Female

DRUGS (1)
  1. HUMIRA [Suspect]
     Active Substance: ADALIMUMAB
     Indication: CROHN^S DISEASE
     Route: 058
     Dates: start: 20190329

REACTIONS (6)
  - Morning sickness [Not Recovered/Not Resolved]
  - Arrested labour [Not Recovered/Not Resolved]
  - Uterine contractions during pregnancy [Not Recovered/Not Resolved]
  - Constipation [Not Recovered/Not Resolved]
  - Maternal exposure during pregnancy [Unknown]
  - Labour complication [Unknown]

NARRATIVE: CASE EVENT DATE: 202003
